FAERS Safety Report 21823521 (Version 20)
Quarter: 2024Q2

REPORT INFORMATION
  Report Type: Spontaneous
  Country: US (occurrence: US)
  Receive Date: 20230105
  Receipt Date: 20240626
  Transmission Date: 20240716
  Serious: Yes (Death, Disabling, Other)
  Sender: FDA-Public Use
  Company Number: US-DSJP-DSU-2023-100136

PATIENT
  Sex: Female

DRUGS (4)
  1. ENHERTU [Suspect]
     Active Substance: FAM-TRASTUZUMAB DERUXTECAN-NXKI
     Indication: HER2 negative breast cancer
     Dosage: UNK
     Route: 065
     Dates: start: 20230413, end: 20230413
  2. ENHERTU [Suspect]
     Active Substance: FAM-TRASTUZUMAB DERUXTECAN-NXKI
     Indication: Breast cancer metastatic
     Dosage: UNK
     Route: 065
     Dates: start: 20230505, end: 20230505
  3. ENHERTU [Suspect]
     Active Substance: FAM-TRASTUZUMAB DERUXTECAN-NXKI
     Dosage: UNK
     Route: 065
     Dates: start: 20230525, end: 20230525
  4. DEXAMETHASONE [Suspect]
     Active Substance: DEXAMETHASONE
     Indication: Premedication
     Dosage: UNK
     Route: 065

REACTIONS (52)
  - Death [Fatal]
  - Lung disorder [Unknown]
  - Neutropenia [Unknown]
  - Pain in extremity [Unknown]
  - Headache [Unknown]
  - Nausea [Unknown]
  - Diarrhoea [Unknown]
  - Decreased appetite [Unknown]
  - Hypersomnia [Not Recovered/Not Resolved]
  - Illness [Unknown]
  - Mood altered [Unknown]
  - Feeling abnormal [Unknown]
  - Mental fatigue [Unknown]
  - General physical health deterioration [Unknown]
  - Gastrointestinal disorder [Unknown]
  - Adverse event [Unknown]
  - Mental disorder [Unknown]
  - Psychiatric symptom [Unknown]
  - Feeling abnormal [Unknown]
  - Feeling abnormal [Unknown]
  - Depressed mood [Unknown]
  - Depressed mood [Unknown]
  - Quality of life decreased [Unknown]
  - Crying [Unknown]
  - Eating disorder [Unknown]
  - Fall [Unknown]
  - Insomnia [Unknown]
  - Pleural effusion [Unknown]
  - Depression [Unknown]
  - Feeling abnormal [Unknown]
  - Asphyxia [Unknown]
  - Lethargy [Unknown]
  - Influenza [Not Recovered/Not Resolved]
  - Haemoglobin decreased [Recovering/Resolving]
  - Malaise [Unknown]
  - Alopecia [Not Recovered/Not Resolved]
  - Dyspnoea [Unknown]
  - Nausea [Unknown]
  - Decreased appetite [Unknown]
  - Fatigue [Unknown]
  - Fatigue [Unknown]
  - Femur fracture [Unknown]
  - Increased appetite [Unknown]
  - Frustration tolerance decreased [Unknown]
  - Metastases to liver [Unknown]
  - Bone formation decreased [Unknown]
  - Metastases to bone [Unknown]
  - Brain neoplasm [Unknown]
  - Drug ineffective [Unknown]
  - Wrong technique in product usage process [Unknown]
  - Product preparation error [Unknown]
  - Product outer packaging issue [Unknown]

NARRATIVE: CASE EVENT DATE: 20230501
